FAERS Safety Report 4299541-X (Version None)
Quarter: 2004Q1

REPORT INFORMATION
  Report Type: 
  Country: None (occurrence: None)
  Receive Date: 20040217
  Receipt Date: 20040202
  Transmission Date: 20041129
  Serious: Yes (Hospitalization, Disabling, Other)
  Sender: FDA-Public Use
  Company Number: 2002070890

PATIENT
  Age: 59 Year
  Sex: Female
  Weight: 58.9676 kg

DRUGS (13)
  1. TIKOSYN [Suspect]
     Indication: ARRHYTHMIA
     Dosage: (BID), ORAL
     Route: 048
  2. TIKOSYN [Suspect]
     Indication: ATRIAL FIBRILLATION
     Dosage: (BID), ORAL
     Route: 048
  3. ESTRADIOL [Concomitant]
  4. FUROSEMIDE [Concomitant]
  5. WARFARIN SODIUM [Concomitant]
  6. LEVOTHYROXINE SODIUM [Concomitant]
  7. SERTRALINE HCL [Concomitant]
  8. POTASSIUM (POTASSIUM) [Concomitant]
  9. CORTISONE (CORTISONE) [Concomitant]
  10. CARVEDILOL [Concomitant]
  11. SPIRONOLACTONE [Concomitant]
  12. FOSINOPRIL SODIUM [Concomitant]
  13. DIGOXIN [Concomitant]

REACTIONS (13)
  - ARRHYTHMIA [None]
  - ATRIAL FIBRILLATION [None]
  - CARDIAC FUNCTION TEST ABNORMAL [None]
  - DIALYSIS [None]
  - DIARRHOEA [None]
  - DRUG INEFFECTIVE [None]
  - GANGRENE [None]
  - IMPAIRED HEALING [None]
  - INFECTED SKIN ULCER [None]
  - LEG AMPUTATION [None]
  - PALPITATIONS [None]
  - POOR PERIPHERAL CIRCULATION [None]
  - TREATMENT NONCOMPLIANCE [None]
